FAERS Safety Report 18125725 (Version 1)
Quarter: 2020Q3

REPORT INFORMATION
  Report Type: Spontaneous
  Country: CN (occurrence: CN)
  Receive Date: 20200807
  Receipt Date: 20200807
  Transmission Date: 20201103
  Serious: Yes (Death)
  Sender: FDA-Public Use
  Company Number: CN-PFIZER INC-2020295303

PATIENT
  Age: 51 Year
  Sex: Male
  Weight: 60 kg

DRUGS (8)
  1. CEFTRIAXONE ARROW [Suspect]
     Active Substance: CEFTRIAXONE SODIUM
     Indication: PEMPHIGOID
     Dosage: 2000 MG, 1X/DAY
  2. METHYLPREDNISOLONE. [Suspect]
     Active Substance: METHYLPREDNISOLONE
     Dosage: 52 MG, 1X/DAY (TAPERING)
  3. IMMUNOGLOBULIN HUMAN NORMAL [Suspect]
     Active Substance: HUMAN IMMUNOGLOBULIN G
     Indication: PEMPHIGOID
     Dosage: 400 MG/KG, DAILY
     Route: 042
  4. METHYLPREDNISOLONE. [Suspect]
     Active Substance: METHYLPREDNISOLONE
     Indication: PEMPHIGOID
     Dosage: 40 MG, 1X/DAY
  5. METHYLPREDNISOLONE. [Suspect]
     Active Substance: METHYLPREDNISOLONE
     Dosage: 60 MG, 1X/DAY (INCREASED)
  6. HUMAN ALBUMIN [Suspect]
     Active Substance: ALBUMIN HUMAN
     Indication: PEMPHIGOID
     Dosage: 10 G, 1X/DAY
  7. PREDNISONE. [Suspect]
     Active Substance: PREDNISONE
     Indication: PEMPHIGOID
     Dosage: 1.25 MG/KG, DAILY
  8. PREDNISONE. [Suspect]
     Active Substance: PREDNISONE
     Dosage: 1 MG/KG, DAILY (TAPERED)

REACTIONS (3)
  - Pneumonia fungal [Fatal]
  - Drug ineffective [Fatal]
  - Respiratory failure [Fatal]
